FAERS Safety Report 6902518-6 (Version None)
Quarter: 2010Q3

REPORT INFORMATION
  Report Type: 
  Country: None (occurrence: None)
  Receive Date: 20100730
  Receipt Date: 20100715
  Transmission Date: 20110219
  Serious: Yes (Hospitalization)
  Sender: FDA-Public Use
  Company Number: 2010002915

PATIENT
  Age: 66 Year
  Sex: Male

DRUGS (1)
  1. TARCEVA [Suspect]
     Indication: NON-SMALL CELL LUNG CANCER
     Dosage: (150 MG,QD),ORAL
     Route: 048
     Dates: start: 20100111, end: 20100126

REACTIONS (8)
  - DIARRHOEA [None]
  - DRUG ERUPTION [None]
  - DYSPNOEA [None]
  - GOUT [None]
  - KERATITIS [None]
  - NERVOUS SYSTEM DISORDER [None]
  - PYREXIA [None]
  - RESPIRATORY DISORDER [None]
